FAERS Safety Report 20012482 (Version 2)
Quarter: 2021Q4

REPORT INFORMATION
  Report Type: Spontaneous
  Country: FR (occurrence: FR)
  Receive Date: 20211029
  Receipt Date: 20211129
  Transmission Date: 20220303
  Serious: Yes (Hospitalization)
  Sender: FDA-Public Use
  Company Number: None

PATIENT
  Age: 67 Year
  Sex: Male

DRUGS (4)
  1. PANTOPRAZOLE [Suspect]
     Active Substance: PANTOPRAZOLE
     Indication: Product used for unknown indication
     Dosage: 40 MILLIGRAM, QD
     Route: 048
     Dates: start: 20210604, end: 20210614
  2. CARBOPLATIN [Suspect]
     Active Substance: CARBOPLATIN
     Indication: Metastatic bronchial carcinoma
     Dosage: 570 MILLIGRAM, TOTAL, C1
     Route: 041
     Dates: start: 20210608
  3. ALIMTA [Suspect]
     Active Substance: PEMETREXED DISODIUM
     Indication: Metastatic bronchial carcinoma
     Dosage: 775 MILLIGRAM, TOTAL, C1
     Route: 041
     Dates: start: 20210608
  4. KEYTRUDA [Suspect]
     Active Substance: PEMBROLIZUMAB
     Indication: Metastatic bronchial carcinoma
     Dosage: 200 MILLIGRAM, TOTAL, C1
     Route: 041
     Dates: start: 20210608

REACTIONS (2)
  - Hepatocellular injury [Recovering/Resolving]
  - Rash maculo-papular [Recovered/Resolved]

NARRATIVE: CASE EVENT DATE: 20210614
